FAERS Safety Report 11421527 (Version 6)
Quarter: 2016Q2

REPORT INFORMATION
  Report Type: Report from Study
  Country: US (occurrence: US)
  Receive Date: 20150826
  Receipt Date: 20160511
  Transmission Date: 20160815
  Serious: Yes (Other)
  Sender: FDA-Public Use
  Company Number: US-AMGEN-USASL2015085996

PATIENT
  Age: 76 Year
  Sex: Female

DRUGS (1)
  1. NPLATE [Suspect]
     Active Substance: ROMIPLOSTIM
     Indication: IMMUNE THROMBOCYTOPENIC PURPURA
     Dosage: UNK UNK, Q6WK
     Route: 065
     Dates: start: 20091231

REACTIONS (18)
  - Knee operation [Unknown]
  - Fatigue [Unknown]
  - Malaise [Unknown]
  - Inappropriate schedule of drug administration [Unknown]
  - Blood pressure increased [Recovered/Resolved]
  - Musculoskeletal pain [Not Recovered/Not Resolved]
  - Platelet count decreased [Unknown]
  - Ovarian operation [Unknown]
  - Pain [Unknown]
  - Headache [Not Recovered/Not Resolved]
  - Neck pain [Not Recovered/Not Resolved]
  - Contusion [Not Recovered/Not Resolved]
  - Musculoskeletal discomfort [Unknown]
  - Meniscal degeneration [Unknown]
  - Platelet count abnormal [Unknown]
  - Arterial disorder [Unknown]
  - Back pain [Unknown]
  - Arthralgia [Not Recovered/Not Resolved]

NARRATIVE: CASE EVENT DATE: 201511
